FAERS Safety Report 12992846 (Version 1)
Quarter: 2016Q4

REPORT INFORMATION
  Report Type: Spontaneous
  Country: CH (occurrence: CH)
  Receive Date: 20161202
  Receipt Date: 20161202
  Transmission Date: 20170207
  Serious: Yes (Other)
  Sender: FDA-Public Use
  Company Number: CH-AMGEN-CHESP2016149407

PATIENT
  Age: 66 Year
  Sex: Female
  Weight: 50 kg

DRUGS (4)
  1. VENLAFAXINE [Concomitant]
     Active Substance: VENLAFAXINE HYDROCHLORIDE
     Indication: AFFECTIVE DISORDER
     Dosage: 1 UNK, QD
     Dates: start: 201304
  2. FEMARA [Concomitant]
     Active Substance: LETROZOLE
     Indication: BREAST CANCER
     Dosage: 1 UNK, QD
     Dates: start: 2011
  3. PERINDOPRIL [Concomitant]
     Active Substance: PERINDOPRIL
     Indication: BLOOD PRESSURE ABNORMAL
     Dosage: 1 UNK, QD
     Dates: start: 2016
  4. PROLIA [Suspect]
     Active Substance: DENOSUMAB
     Indication: OSTEOPOROSIS
     Dosage: 60 MG, Q6MO
     Route: 065
     Dates: start: 20130108

REACTIONS (1)
  - Vitiligo [Not Recovered/Not Resolved]

NARRATIVE: CASE EVENT DATE: 201304
